FAERS Safety Report 5082222-2 (Version None)
Quarter: 2006Q3

REPORT INFORMATION
  Report Type: 
  Country: None (occurrence: None)
  Receive Date: 20060814
  Receipt Date: 20060804
  Transmission Date: 20061208
  Serious: Yes (Other)
  Sender: FDA-Public Use
  Company Number: 2006-08-0326

PATIENT
  Age: 72 Year
  Sex: Female

DRUGS (1)
  1. LOTRISONE [Suspect]
     Dosage: TOP-DERM
     Route: 061

REACTIONS (1)
  - CEREBROVASCULAR ACCIDENT [None]
